FAERS Safety Report 10583090 (Version 4)
Quarter: 2015Q1

REPORT INFORMATION
  Report Type: Spontaneous
  Country: US (occurrence: US)
  Receive Date: 20141114
  Receipt Date: 20150203
  Transmission Date: 20150720
  Serious: Yes (Death, Life-Threatening, Hospitalization, Disabling, Other)
  Sender: FDA-Public Use
  Company Number: US-009507513-1411USA005596

PATIENT
  Age: 73 Year
  Sex: Male
  Weight: 111.11 kg

DRUGS (1)
  1. JANUVIA [Suspect]
     Active Substance: SITAGLIPTIN PHOSPHATE
     Indication: TYPE 2 DIABETES MELLITUS
     Dosage: 100MG QD
     Route: 048
     Dates: start: 200906, end: 20140825

REACTIONS (36)
  - Acute respiratory distress syndrome [Unknown]
  - Respiratory failure [Unknown]
  - Acute kidney injury [Unknown]
  - Pancreatitis haemorrhagic [Unknown]
  - Hypercholesterolaemia [Unknown]
  - Acute sinusitis [Unknown]
  - Cellulitis [Unknown]
  - Hypertonic bladder [Unknown]
  - Hyponatraemia [Unknown]
  - Lactic acidosis [Unknown]
  - Metabolic acidosis [Unknown]
  - Dyspnoea [Unknown]
  - Erectile dysfunction [Unknown]
  - Hypoacusis [Unknown]
  - Pancreatitis acute [Fatal]
  - Pneumonia staphylococcal [Unknown]
  - Diabetes mellitus inadequate control [Unknown]
  - Thrombocytopenia [Unknown]
  - Respiratory arrest [Fatal]
  - Bradycardia [Unknown]
  - Hyperphosphataemia [Unknown]
  - Hypocalcaemia [Unknown]
  - Cholelithiasis [Unknown]
  - Nephrolithiasis [Unknown]
  - Delirium [Unknown]
  - Cardiac arrest [Fatal]
  - Cataract operation [Unknown]
  - Anal fissure [Unknown]
  - Dyslipidaemia [Unknown]
  - Hyperkalaemia [Unknown]
  - Somnolence [Unknown]
  - Obesity [Unknown]
  - Hyperlipidaemia [Unknown]
  - Anal sphincterotomy [Unknown]
  - Post procedural urine leak [Unknown]
  - Large intestine polyp [Unknown]

NARRATIVE: CASE EVENT DATE: 2013
